FAERS Safety Report 12136308 (Version 2)
Quarter: 2016Q1

REPORT INFORMATION
  Report Type: Report from Study
  Country: AR (occurrence: AR)
  Receive Date: 20160302
  Receipt Date: 20160317
  Transmission Date: 20160526
  Serious: Yes (Other)
  Sender: FDA-Public Use
  Company Number: PHHY2016AR027180

PATIENT
  Age: 65 Year
  Sex: Female

DRUGS (6)
  1. LESCOL [Suspect]
     Active Substance: FLUVASTATIN SODIUM
     Indication: BLOOD CHOLESTEROL INCREASED
     Dosage: UNK, BID (1 IN THE MORNING AND OTHER AT NIGHT)
     Route: 065
     Dates: start: 201507
  2. TRIMETAZIDINE [Concomitant]
     Active Substance: TRIMETAZIDINE
     Indication: PRODUCT USED FOR UNKNOWN INDICATION
     Dosage: 35 MG, BID
     Route: 065
  3. NEBIVOLOL. [Concomitant]
     Active Substance: NEBIVOLOL
     Indication: HEART RATE INCREASED
     Dosage: 2.5 MG, BID
     Route: 065
  4. BUFLOMEDIL [Concomitant]
     Active Substance: BUFLOMEDIL
     Dosage: UNK EVERY 6 HOURS
     Route: 065
  5. PENTOXIFYLLINE. [Concomitant]
     Active Substance: PENTOXIFYLLINE
     Indication: CARDIAC DISORDER
     Dosage: 400 MG, BID
     Route: 065
  6. ENALAPRIL [Concomitant]
     Active Substance: ENALAPRIL
     Indication: PRODUCT USED FOR UNKNOWN INDICATION
     Dosage: 2.5 MG, BID
     Route: 065

REACTIONS (8)
  - Peripheral ischaemia [Not Recovered/Not Resolved]
  - Pain in extremity [Not Recovered/Not Resolved]
  - Pallor [Not Recovered/Not Resolved]
  - Feeling hot [Recovering/Resolving]
  - Gait disturbance [Not Recovered/Not Resolved]
  - Peripheral coldness [Not Recovered/Not Resolved]
  - Arterial occlusive disease [Not Recovered/Not Resolved]
  - Infarction [Recovered/Resolved]

NARRATIVE: CASE EVENT DATE: 20151202
